FAERS Safety Report 14961218 (Version 1)
Quarter: 2018Q2

REPORT INFORMATION
  Report Type: Spontaneous
  Country: US (occurrence: US)
  Receive Date: 20180601
  Receipt Date: 20180601
  Transmission Date: 20180711
  Serious: No
  Sender: FDA-Public Use
  Company Number: US-009507513-1805USA003962

PATIENT
  Age: 79 Year
  Sex: Female

DRUGS (3)
  1. SINEMET [Suspect]
     Active Substance: CARBIDOPA\LEVODOPA
     Dosage: UNK
     Route: 048
  2. SINEMET [Suspect]
     Active Substance: CARBIDOPA\LEVODOPA
     Dosage: ONE TABLET THREE TIMES DAILY
     Route: 048
  3. SINEMET [Suspect]
     Active Substance: CARBIDOPA\LEVODOPA
     Dosage: 1/5 TABLET, THREE TIMES DAILY
     Route: 048

REACTIONS (20)
  - Muscle rigidity [Unknown]
  - Muscle spasms [Unknown]
  - Drooling [Unknown]
  - Dysgraphia [Unknown]
  - Weight increased [Unknown]
  - Dysphonia [Unknown]
  - Constipation [Unknown]
  - Dysstasia [Unknown]
  - Reduced facial expression [Unknown]
  - Bradykinesia [Unknown]
  - Freezing phenomenon [Unknown]
  - Joint swelling [Unknown]
  - Resting tremor [Unknown]
  - Musculoskeletal stiffness [Unknown]
  - Fall [Unknown]
  - Gait disturbance [Unknown]
  - Condition aggravated [Unknown]
  - Impaired self-care [Unknown]
  - Somnolence [Unknown]
  - Depression [Unknown]

NARRATIVE: CASE EVENT DATE: 201705
